FAERS Safety Report 4815215-8 (Version None)
Quarter: 2005Q4

REPORT INFORMATION
  Report Type: 
  Country: None (occurrence: None)
  Receive Date: 20051028
  Receipt Date: 20051010
  Transmission Date: 20060501
  Serious: Yes (Hospitalization, Disabling)
  Sender: FDA-Public Use
  Company Number: US-MERCK-0510USA05818

PATIENT
  Sex: Female

DRUGS (5)
  1. ZETIA [Suspect]
     Route: 048
     Dates: start: 20041201, end: 20050928
  2. HYDRODIURIL [Concomitant]
     Route: 065
  3. CELEBREX [Concomitant]
     Route: 065
  4. NEXIUM [Concomitant]
     Route: 065
  5. TOPROL-XL [Concomitant]
     Route: 048

REACTIONS (9)
  - ALANINE AMINOTRANSFERASE INCREASED [None]
  - ANAEMIA [None]
  - ARTHRALGIA [None]
  - ASPARTATE AMINOTRANSFERASE INCREASED [None]
  - CHEST PAIN [None]
  - MYOSITIS [None]
  - PAIN IN EXTREMITY [None]
  - PARALYSIS [None]
  - SELF-INJURIOUS IDEATION [None]
